FAERS Safety Report 10072794 (Version 1)
Quarter: 2014Q2

REPORT INFORMATION
  Report Type: Spontaneous
  Country: CA (occurrence: None)
  Receive Date: 20140409
  Receipt Date: 20140409
  Transmission Date: 20141212
  Serious: Yes (Other)
  Sender: FDA-Public Use
  Company Number: 2014P1002724

PATIENT
  Age: 32 Year
  Sex: Female

DRUGS (7)
  1. PHENYLEPHRINE [Suspect]
     Indication: SPINAL ANAESTHESIA
     Route: 042
  2. EPHEDRINE [Suspect]
     Indication: BRADYCARDIA
     Route: 042
  3. EPHEDRINE [Suspect]
     Indication: HYPOTENSION
     Route: 042
  4. FENTANYL [Concomitant]
  5. BUPIVACAINE [Concomitant]
  6. MORPHINE [Concomitant]
  7. ATROPINE [Concomitant]

REACTIONS (10)
  - Spinal cord disorder [None]
  - Neuralgia [None]
  - Motor dysfunction [None]
  - Hypotension [None]
  - Dysaesthesia [None]
  - Sensorimotor disorder [None]
  - Post procedural complication [None]
  - Exposure during pregnancy [None]
  - Vasoconstriction [None]
  - Neuromuscular block prolonged [None]
